FAERS Safety Report 21057369 (Version 1)
Quarter: 2022Q3

REPORT INFORMATION
  Report Type: Spontaneous
  Country: US (occurrence: None)
  Receive Date: 20220707
  Receipt Date: 20220707
  Transmission Date: 20221026
  Serious: Yes (unspecified)
  Sender: FDA-Public Use
  Company Number: None

PATIENT
  Age: 44 Year
  Sex: Female
  Weight: 67.5 kg

DRUGS (9)
  1. FAMOTIDINE [Suspect]
     Active Substance: FAMOTIDINE
     Indication: Gastrooesophageal reflux disease
     Dosage: FREQUENCY : TWICE A DAY;?
     Route: 048
     Dates: start: 20220508, end: 20220512
  2. ZYRTEC [Concomitant]
     Active Substance: CETIRIZINE HYDROCHLORIDE
  3. AYGESTIN [Concomitant]
     Active Substance: NORETHINDRONE ACETATE
  4. IBUPROFEN [Concomitant]
     Active Substance: IBUPROFEN
  5. PROCOSA [Concomitant]
  6. VITAMINS [Concomitant]
     Active Substance: VITAMINS
  7. CALCIUM [Concomitant]
     Active Substance: CALCIUM
  8. VITAMIN D [Concomitant]
     Active Substance: VITAMIN D NOS
  9. Berkeley and Jensen probiotic [Concomitant]

REACTIONS (6)
  - Dysgeusia [None]
  - Defaecation urgency [None]
  - Diarrhoea [None]
  - Vision blurred [None]
  - Fluid retention [None]
  - Therapy cessation [None]

NARRATIVE: CASE EVENT DATE: 20220511
